FAERS Safety Report 12669326 (Version 1)
Quarter: 2016Q3

REPORT INFORMATION
  Report Type: Spontaneous
  Country: GB (occurrence: GB)
  Receive Date: 20160819
  Receipt Date: 20160819
  Transmission Date: 20161109
  Serious: Yes (Other)
  Sender: FDA-Public Use
  Company Number: GB-PFIZER INC-2016388250

PATIENT
  Age: 63 Year
  Sex: Female
  Weight: 80 kg

DRUGS (19)
  1. ACTIVON TULLE [Concomitant]
     Dosage: USE AS DIRECTED
     Dates: start: 20160805
  2. ANORO ELLIPTA [Concomitant]
     Active Substance: UMECLIDINIUM BROMIDE\VILANTEROL TRIFENATATE
     Dosage: 1 DF, 1X/DAY
     Route: 055
     Dates: start: 20151223
  3. FERROUS SULFATE. [Concomitant]
     Active Substance: FERROUS SULFATE
     Dosage: 1 DF, 3X/DAY
     Dates: start: 20160509, end: 20160606
  4. HUMULIN M3 [Concomitant]
     Active Substance: INSULIN HUMAN
     Dosage: 1 DF, 2X/DAY (AS DIRECTED)
     Dates: start: 20160509
  5. HYDROXOCOBALAMIN [Concomitant]
     Active Substance: HYDROXOCOBALAMIN
     Dosage: UNK, EVERY 3 WEEKS
     Dates: start: 20160506, end: 20160603
  6. BYETTA [Concomitant]
     Active Substance: EXENATIDE
     Dosage: 1 DF, 2X/DAY (UP TO ONE HOUR BEFORE FOOD)
     Dates: start: 20151223, end: 20160509
  7. FERROUS FUMARATE [Concomitant]
     Active Substance: FERROUS FUMARATE
     Dosage: 1 DF, 3X/DAY
     Dates: start: 20160603, end: 20160701
  8. SALBUTAMOL [Concomitant]
     Active Substance: ALBUTEROL
     Dosage: 2 DF, UNK
     Route: 055
     Dates: start: 20151229
  9. DOXYCYCLINE MONOHYDRATE [Suspect]
     Active Substance: DOXYCYCLINE
     Dates: start: 20160805
  10. ASPIRIN /00002701/ [Concomitant]
     Active Substance: ASPIRIN
     Dosage: 1 DF, 1X/DAY
     Dates: start: 20151204
  11. EMPAGLIFLOZIN [Concomitant]
     Active Substance: EMPAGLIFLOZIN
     Dosage: 1 DF, 1X/DAY
     Dates: start: 20151223, end: 20160509
  12. HYDROXOCOBALAMIN [Concomitant]
     Active Substance: HYDROXOCOBALAMIN
     Dosage: A DOSE OF 1 MG 3 TIMES WEEKLY FOR 2 WEEKS
  13. METFORMIN [Concomitant]
     Active Substance: METFORMIN HYDROCHLORIDE
     Dosage: 1 DF, 3X/DAY
     Dates: start: 20151204
  14. GLUCOSE [Concomitant]
     Active Substance: DEXTROSE
     Dosage: USE AS DIRECTED
     Dates: start: 20160509
  15. OMEPRAZOLE. [Concomitant]
     Active Substance: OMEPRAZOLE
     Dosage: 1 DF, 1X/DAY
     Dates: start: 20151204
  16. CLARITHROMYCIN. [Concomitant]
     Active Substance: CLARITHROMYCIN
     Dosage: 1 DF, 2X/DAY (EVERY 12 HOURS)
     Dates: start: 20160805
  17. GLICLAZIDE [Concomitant]
     Active Substance: GLICLAZIDE
     Dosage: 2 DF, 2X/DAY
     Dates: start: 20151204, end: 20160509
  18. QUINAPRIL. [Concomitant]
     Active Substance: QUINAPRIL
     Dosage: 1 DF, 1X/DAY
     Dates: start: 20151204
  19. SIMVASTATIN. [Concomitant]
     Active Substance: SIMVASTATIN
     Dosage: 1 DF, 1X/DAY (AT NIGHT)
     Dates: start: 20151204

REACTIONS (1)
  - Malaise [Recovering/Resolving]

NARRATIVE: CASE EVENT DATE: 20160805
